FAERS Safety Report 23243065 (Version 2)
Quarter: 2023Q4

REPORT INFORMATION
  Report Type: Spontaneous
  Country: NP (occurrence: NP)
  Receive Date: 20231130
  Receipt Date: 20231208
  Transmission Date: 20240110
  Serious: Yes (Hospitalization)
  Sender: FDA-Public Use
  Company Number: NP-BoehringerIngelheim-2023-BI-274514

PATIENT
  Age: 62 Year
  Sex: Female

DRUGS (2)
  1. TELMISARTAN [Suspect]
     Active Substance: TELMISARTAN
     Indication: Hypertension
  2. LITHIUM [Suspect]
     Active Substance: LITHIUM
     Indication: Bipolar I disorder

REACTIONS (6)
  - Toxicity to various agents [Recovering/Resolving]
  - Hypochromic anaemia [Unknown]
  - Microcytic anaemia [Unknown]
  - Blood urea increased [Unknown]
  - Vitamin D decreased [Unknown]
  - Drug interaction [Unknown]
